FAERS Safety Report 8211854-5 (Version None)
Quarter: 2012Q1

REPORT INFORMATION
  Report Type: 
  Country: None (occurrence: None)
  Receive Date: 20120228
  Receipt Date: 20111115
  Transmission Date: 20120608
  Serious: Yes (Hospitalization)
  Sender: FDA-Public Use
  Company Number: RB-34363-2011

PATIENT

DRUGS (1)
  1. BUPRENORPHINE [Suspect]
     Indication: EUPHORIC MOOD
     Dosage: USED 24 MG

REACTIONS (1)
  - SUBSTANCE ABUSE [None]
